FAERS Safety Report 20760674 (Version 2)
Quarter: 2022Q2

REPORT INFORMATION
  Report Type: Spontaneous
  Country: US (occurrence: US)
  Receive Date: 20220428
  Receipt Date: 20220506
  Transmission Date: 20220721
  Serious: Yes (Other)
  Sender: FDA-Public Use
  Company Number: US-CELLTRION INC.-2022US004988

PATIENT

DRUGS (7)
  1. TRUXIMA [Suspect]
     Active Substance: RITUXIMAB-ABBS
     Indication: Multiple sclerosis
     Dosage: LAST GIVEN ON 3/26/2021
     Dates: start: 20210326
  2. TRUXIMA [Suspect]
     Active Substance: RITUXIMAB-ABBS
     Dosage: 500 MG Q26 WEEKS
     Route: 042
     Dates: start: 20220302, end: 20220302
  3. TYLENOL [Concomitant]
     Active Substance: ACETAMINOPHEN
     Dosage: 1000 MILLIGRAM, ONCE
     Route: 048
     Dates: start: 20220302, end: 20220302
  4. ZYRTEC [Concomitant]
     Active Substance: CETIRIZINE HYDROCHLORIDE
     Dosage: 10 MILLIGRAM, ONCE
     Route: 048
     Dates: start: 20220302, end: 20220302
  5. SOLU-MEDROL [Concomitant]
     Active Substance: METHYLPREDNISOLONE SODIUM SUCCINATE
     Dosage: 125 MILLIGRAM, ONCE
     Route: 042
     Dates: start: 20220302, end: 20220302
  6. PROVIGIL [Concomitant]
     Active Substance: MODAFINIL
     Indication: Fatigue
     Dosage: 100 MILLIGRAM, EVERY MORNING. CAN TAKE 1 TAB IF NEEDED FOR FATIGUE
     Route: 048
     Dates: start: 20220209
  7. DIOVAN HCT [Concomitant]
     Active Substance: HYDROCHLOROTHIAZIDE\VALSARTAN
     Dosage: 1 TABLET BY MOUTH NIGHTLY AT BEDTIME
     Route: 048
     Dates: start: 20210127

REACTIONS (4)
  - Multiple sclerosis [Unknown]
  - Off label use [Unknown]
  - Product dose omission issue [Unknown]
  - Insurance issue [Unknown]
